FAERS Safety Report 9478130 (Version 4)
Quarter: 2014Q1

REPORT INFORMATION
  Report Type: Spontaneous
  Country: DE (occurrence: DE)
  Receive Date: 20130827
  Receipt Date: 20140108
  Transmission Date: 20141002
  Serious: Yes (Life-Threatening, Hospitalization, Other)
  Sender: FDA-Public Use
  Company Number: DE-009507513-1308DEU011287

PATIENT
  Age: 75 Year
  Sex: Female
  Weight: 70 kg

DRUGS (11)
  1. SYCREST [Suspect]
     Indication: HALLUCINATION, AUDITORY
     Dosage: 5 UNK, UNK
     Route: 060
     Dates: start: 20130730
  2. SYCREST [Suspect]
     Dosage: 10 MG, BID
     Route: 060
     Dates: end: 20130812
  3. QUILONUM-RETARD [Concomitant]
     Indication: PROPHYLAXIS
     Dosage: 225 MG, BID
     Route: 048
     Dates: end: 20130812
  4. CYMBALTA [Concomitant]
     Indication: DEPRESSION
     Dosage: 60 MG, BID
     Route: 048
     Dates: end: 20130812
  5. AKINETON TABLETS [Concomitant]
     Indication: MUSCLE RIGIDITY
     Dosage: 4 MG, QD
     Route: 048
  6. AKINETON TABLETS [Concomitant]
     Dosage: 8MG/DAY
  7. VESIKUR [Concomitant]
     Indication: INCONTINENCE
     Dosage: 10 MG, BID
     Route: 048
  8. AMISULPRIDE [Concomitant]
     Indication: HALLUCINATION, AUDITORY
     Dosage: 200 MG, UNK
  9. SERTRALINE HYDROCHLORIDE [Concomitant]
     Indication: DEPRESSION
     Dosage: 100 MG PER DAY
  10. CLOZAPINE [Concomitant]
     Indication: HALLUCINATION, AUDITORY
     Dosage: UNK
  11. CYMBALTA [Concomitant]
     Indication: DEPRESSION
     Dosage: 180 MG, PER DAY
     Route: 048

REACTIONS (5)
  - Disturbance in attention [Recovering/Resolving]
  - Tardive dyskinesia [Recovering/Resolving]
  - Neuroleptic malignant syndrome [Recovering/Resolving]
  - Parkinson^s disease [Recovering/Resolving]
  - Off label use [Unknown]
